FAERS Safety Report 10109484 (Version 1)
Quarter: 2014Q2

REPORT INFORMATION
  Report Type: Spontaneous
  Country: US (occurrence: US)
  Receive Date: 20140425
  Receipt Date: 20140425
  Transmission Date: 20141212
  Serious: Yes (Other)
  Sender: FDA-Public Use
  Company Number: US-AMGEN-USASP2014028527

PATIENT
  Age: 80 Year
  Sex: Male

DRUGS (5)
  1. NPLATE [Suspect]
     Indication: PRODUCT USED FOR UNKNOWN INDICATION
     Dosage: 4 MUG/KG, QWK
     Route: 065
     Dates: start: 201310
  2. CRESTOR [Concomitant]
  3. AVAPRO [Concomitant]
  4. AMBIEN [Concomitant]
  5. BYSTOLIC [Concomitant]

REACTIONS (1)
  - Platelet count decreased [Unknown]
